FAERS Safety Report 8464070-6 (Version None)
Quarter: 2012Q2

REPORT INFORMATION
  Report Type: 
  Country: None (occurrence: None)
  Receive Date: 20120625
  Receipt Date: 20120611
  Transmission Date: 20120825
  Serious: No
  Sender: FDA-Public Use
  Company Number: US-ASTRAZENECA-2011SE19302

PATIENT
  Age: 58 Year
  Sex: Female
  Weight: 87.1 kg

DRUGS (4)
  1. NEXIUM [Suspect]
     Indication: BREAST CANCER
     Route: 048
  2. KEFLEX [Concomitant]
     Indication: URINARY TRACT INFECTION
  3. AMOXICILLIN [Concomitant]
     Indication: PAIN
  4. MICROBAN [Concomitant]
     Indication: URINARY TRACT INFECTION

REACTIONS (4)
  - URINARY TRACT INFECTION [None]
  - PAIN [None]
  - DYSPEPSIA [None]
  - DRUG DOSE OMISSION [None]
